FAERS Safety Report 5214975-4 (Version None)
Quarter: 2007Q1

REPORT INFORMATION
  Report Type: 
  Country: None (occurrence: None)
  Receive Date: 20070122
  Receipt Date: 20070110
  Transmission Date: 20070707
  Serious: Yes (Life-Threatening, Hospitalization)
  Sender: FDA-Public Use
  Company Number: GB-PFIZER INC-2007004060

PATIENT
  Age: 67 Year
  Sex: Female

DRUGS (6)
  1. LYRICA [Suspect]
     Indication: DIABETIC NEUROPATHY
     Route: 048
     Dates: start: 20061113, end: 20061120
  2. ASPIRIN [Concomitant]
     Route: 048
  3. INFLUVAC [Concomitant]
     Route: 030
     Dates: start: 20061113, end: 20061113
  4. IRBESARTAN [Concomitant]
     Route: 048
  5. MIXTARD HUMAN 70/30 [Concomitant]
     Route: 058
  6. SIMVASTATIN [Concomitant]
     Route: 048

REACTIONS (2)
  - DEPRESSED LEVEL OF CONSCIOUSNESS [None]
  - HYPOGLYCAEMIA [None]
